FAERS Safety Report 6074473-5 (Version None)
Quarter: 2009Q1

REPORT INFORMATION
  Report Type: 
  Country: None (occurrence: None)
  Receive Date: 20090211
  Receipt Date: 20090127
  Transmission Date: 20090719
  Serious: Yes (Other)
  Sender: FDA-Public Use
  Company Number: DE-GENENTECH-277117

PATIENT
  Age: 68 Year
  Sex: Male

DRUGS (4)
  1. RITUXIMAB [Suspect]
     Indication: RHEUMATOID ARTHRITIS
     Dosage: UNK MG, UNK
     Route: 065
     Dates: start: 20070401
  2. RITUXIMAB [Suspect]
     Dosage: 1000 MG, UNK
     Route: 065
     Dates: start: 20080311
  3. LEFLUNOMIDE [Concomitant]
     Indication: DRUG USE FOR UNKNOWN INDICATION
     Dosage: UNK
     Dates: start: 20040301, end: 20070401
  4. ETANERCEPT [Concomitant]
     Indication: DRUG USE FOR UNKNOWN INDICATION
     Dosage: UNK
     Dates: start: 20041101, end: 20070401

REACTIONS (1)
  - VESTIBULAR NEURONITIS [None]
